FAERS Safety Report 18820161 (Version 1)
Quarter: 2021Q1

REPORT INFORMATION
  Report Type: Report from Study
  Country: JP (occurrence: JP)
  Receive Date: 20210202
  Receipt Date: 20210202
  Transmission Date: 20210419
  Serious: Yes (Other)
  Sender: FDA-Public Use
  Company Number: JP-SUN PHARMACEUTICAL INDUSTRIES LTD-2021R1-278641

PATIENT

DRUGS (2)
  1. NAB?PACLITAXEL [Suspect]
     Active Substance: PACLITAXEL
     Indication: PANCREATIC CARCINOMA
     Dosage: 100 MILLIGRAM/SQ. METER (DAYS ONE, EIGHT, AND FIFTEEN, FOLLOWED BY A ONE?WEEK REST)
     Route: 065
  2. GEMCITABINE. [Suspect]
     Active Substance: GEMCITABINE
     Indication: PANCREATIC CARCINOMA
     Dosage: 1000 MILLIGRAM/SQ. METER (DAYS ONE, EIGHT, AND FIFTEEN, FOLLOWED BY A ONE?WEEK REST)
     Route: 065

REACTIONS (1)
  - Interstitial lung disease [Unknown]
